FAERS Safety Report 26123264 (Version 2)
Quarter: 2025Q4

REPORT INFORMATION
  Report Type: Spontaneous
  Country: US (occurrence: None)
  Receive Date: 20251204
  Receipt Date: 20251215
  Transmission Date: 20260117
  Serious: No
  Sender: ALKERMES
  Company Number: US-ALKERMES INC.-ALK-2025-003177

PATIENT
  Age: 33 Year
  Sex: Female
  Weight: 202.7 kg

DRUGS (1)
  1. VIVITROL [Suspect]
     Active Substance: NALTREXONE
     Indication: Alcoholism
     Dosage: 380 MILLIGRAM, QMO

REACTIONS (1)
  - Injection site mass [Recovering/Resolving]

NARRATIVE: CASE EVENT DATE: 20251017
